FAERS Safety Report 7431860-8 (Version None)
Quarter: 2011Q2

REPORT INFORMATION
  Report Type: 
  Country: None (occurrence: None)
  Receive Date: 20110422
  Receipt Date: 20110412
  Transmission Date: 20111010
  Serious: Yes (Other)
  Sender: FDA-Public Use
  Company Number: US-ELI_LILLY_AND_COMPANY-US201104004042

PATIENT
  Sex: Female

DRUGS (1)
  1. FORTEO [Suspect]
     Dosage: 20 UG, QD
     Route: 058
     Dates: start: 20100513

REACTIONS (5)
  - WRIST FRACTURE [None]
  - RIB FRACTURE [None]
  - FALL [None]
  - LOWER LIMB FRACTURE [None]
  - CLAVICLE FRACTURE [None]
